FAERS Safety Report 10410175 (Version 1)
Quarter: 2014Q3

REPORT INFORMATION
  Report Type: Spontaneous
  Country: US (occurrence: US)
  Receive Date: 20140826
  Receipt Date: 20140826
  Transmission Date: 20150326
  Serious: Yes (Other)
  Sender: FDA-Public Use
  Company Number: US-JNJFOC-20140818085

PATIENT
  Age: 57 Year
  Sex: Female

DRUGS (6)
  1. VALIUM [Concomitant]
     Active Substance: DIAZEPAM
     Route: 065
  2. TOPAMAX [Suspect]
     Active Substance: TOPIRAMATE
     Indication: PARTIAL SEIZURES
     Route: 048
  3. RESTASIS [Concomitant]
     Active Substance: CYCLOSPORINE
     Route: 065
  4. CYMBALTA [Concomitant]
     Active Substance: DULOXETINE HYDROCHLORIDE
     Route: 065
  5. LAMICTAL [Suspect]
     Active Substance: LAMOTRIGINE
     Indication: PARTIAL SEIZURES
     Route: 048
     Dates: start: 20140724, end: 20140731
  6. MVI [Concomitant]
     Active Substance: VITAMINS
     Route: 065

REACTIONS (9)
  - Convulsion [Not Recovered/Not Resolved]
  - Paralysis [Recovering/Resolving]
  - Insomnia [Recovering/Resolving]
  - Pain [Recovering/Resolving]
  - Back pain [Recovering/Resolving]
  - Malaise [Recovering/Resolving]
  - Monoplegia [Recovering/Resolving]
  - Eye pain [Recovering/Resolving]
  - Pain in extremity [Recovering/Resolving]

NARRATIVE: CASE EVENT DATE: 20140724
